FAERS Safety Report 25329528 (Version 2)
Quarter: 2025Q4

REPORT INFORMATION
  Report Type: Spontaneous
  Country: US (occurrence: US)
  Receive Date: 20250519
  Receipt Date: 20251203
  Transmission Date: 20260118
  Serious: No
  Sender: IPSEN BIOPHARMACEUTICALS, INC.
  Company Number: US-IPSEN Group, Research and Development-2025-09346

PATIENT
  Age: 15 Year
  Sex: Female
  Weight: 61 kg

DRUGS (7)
  1. TAZVERIK [Suspect]
     Active Substance: TAZEMETOSTAT HYDROBROMIDE
     Indication: Brain neoplasm malignant
     Route: 048
     Dates: start: 20250424
  2. TAZVERIK [Suspect]
     Active Substance: TAZEMETOSTAT HYDROBROMIDE
     Indication: Off label use
  3. BACITRACIN [Concomitant]
     Active Substance: BACITRACIN
  4. LACOSAMIDE [Concomitant]
     Active Substance: LACOSAMIDE
  5. TYLENOL [Concomitant]
     Active Substance: ACETAMINOPHEN
  6. VALTOCO [Concomitant]
     Active Substance: DIAZEPAM
  7. ZOFRAN [Concomitant]
     Active Substance: ONDANSETRON HYDROCHLORIDE

REACTIONS (4)
  - Increased appetite [Not Recovered/Not Resolved]
  - Off label use [Unknown]
  - Off label use [Unknown]
  - Hospice care [Unknown]

NARRATIVE: CASE EVENT DATE: 20250401
